FAERS Safety Report 14881794 (Version 2)
Quarter: 2018Q2

REPORT INFORMATION
  Report Type: Report from Study
  Country: FR (occurrence: FR)
  Receive Date: 20180511
  Receipt Date: 20180529
  Transmission Date: 20180711
  Serious: Yes (Hospitalization)
  Sender: FDA-Public Use
  Company Number: FR-PFIZER INC-2018191572

PATIENT
  Age: 68 Year
  Sex: Female
  Weight: 65 kg

DRUGS (12)
  1. IRINOTECAN HCL [Suspect]
     Active Substance: IRINOTECAN HYDROCHLORIDE
     Dosage: 260 MG, UNK
     Dates: start: 20180112, end: 20180223
  2. LOPERAMIDE [Concomitant]
     Active Substance: LOPERAMIDE
     Indication: DIARRHOEA
     Dosage: 4 DF, 1X/DAY (2 (NO UNITS PROVIDED))
     Route: 048
  3. LODOZ [Concomitant]
     Active Substance: BISOPROLOL FUMARATE\HYDROCHLOROTHIAZIDE
     Dosage: 1 DF, 1X/DAY (10/6.25 (UNITS NOT PROVIDED)
     Route: 048
  4. ERBITUX [Suspect]
     Active Substance: CETUXIMAB
     Dosage: 840 MG, UNK
     Dates: start: 20180112, end: 20180223
  5. OMEPRAZOLE. [Concomitant]
     Active Substance: OMEPRAZOLE
     Dosage: 1 DF, 1X/DAY (20 (UNITS NOT PROVIDED))
     Route: 048
  6. ERBITUX [Suspect]
     Active Substance: CETUXIMAB
     Indication: COLORECTAL CANCER METASTATIC
     Dosage: 880 MG, UNK
     Dates: start: 20171229
  7. TRAMADOL. [Concomitant]
     Active Substance: TRAMADOL
     Dosage: 150 MG, 1X/DAY
     Route: 048
  8. FLUOROURACIL. [Suspect]
     Active Substance: FLUOROURACIL
     Indication: COLORECTAL CANCER METASTATIC
     Dosage: 4900 MG, UNK
     Dates: start: 20171229
  9. FLUOROURACIL. [Suspect]
     Active Substance: FLUOROURACIL
     Dosage: 4660 MG, UNK
     Dates: start: 20180112, end: 20180223
  10. IRINOTECAN HCL [Suspect]
     Active Substance: IRINOTECAN HYDROCHLORIDE
     Indication: COLORECTAL CANCER METASTATIC
     Dosage: 320 MG, UNK
     Dates: start: 20171229
  11. DOLIPRANE [Concomitant]
     Active Substance: ACETAMINOPHEN
     Route: 048
  12. TOLEXINE /00055701/ [Concomitant]
     Active Substance: DOXYCYCLINE
     Dosage: 100 MG, 1X/DAY
     Route: 048
     Dates: start: 20171127

REACTIONS (2)
  - Asthenia [Recovered/Resolved]
  - General physical health deterioration [Recovered/Resolved]

NARRATIVE: CASE EVENT DATE: 20180116
